FAERS Safety Report 15215693 (Version 3)
Quarter: 2018Q3

REPORT INFORMATION
  Report Type: Spontaneous
  Country: JP (occurrence: JP)
  Receive Date: 20180730
  Receipt Date: 20180904
  Transmission Date: 20181010
  Serious: Yes (Life-Threatening, Hospitalization, Disabling, Other)
  Sender: FDA-Public Use
  Company Number: JP-NOVOPROD-603204

PATIENT
  Age: 70 Year
  Sex: Female

DRUGS (14)
  1. METFORMIN [Concomitant]
     Active Substance: METFORMIN HYDROCHLORIDE
     Dosage: 250 MG, QD
     Route: 048
  2. TRESIBA CHU FLEXTOUCH [Suspect]
     Active Substance: INSULIN DEGLUDEC
     Indication: TYPE 2 DIABETES MELLITUS
     Dosage: 8 U, QD
     Route: 058
  3. INSULIN GLARGINE [Concomitant]
     Active Substance: INSULIN GLARGINE
     Dosage: 6 U
     Route: 065
     Dates: start: 20180530
  4. INSULIN GLARGINE [Concomitant]
     Active Substance: INSULIN GLARGINE
     Dosage: 14 U
     Route: 065
     Dates: start: 20180602
  5. NICHOLIN [Concomitant]
     Active Substance: CITICOLINE
     Indication: PRODUCT USED FOR UNKNOWN INDICATION
     Dosage: 2 AMPULES
     Route: 065
     Dates: start: 20180601, end: 20180618
  6. GLIMEPIRIDE. [Concomitant]
     Active Substance: GLIMEPIRIDE
     Dosage: 1 MG, QD
     Route: 048
  7. PRAVASTATIN NA [Concomitant]
     Active Substance: PRAVASTATIN SODIUM
     Dosage: 10 MG, QD
     Route: 048
  8. TRESIBA CHU FLEXTOUCH [Suspect]
     Active Substance: INSULIN DEGLUDEC
     Dosage: 20 IU
     Route: 058
     Dates: start: 20180610
  9. INSULIN GLARGINE [Concomitant]
     Active Substance: INSULIN GLARGINE
     Dosage: 18 U
     Route: 065
     Dates: start: 20180605
  10. HUMALOG [Concomitant]
     Active Substance: INSULIN LISPRO
     Dosage: SLIDING SCALE
     Route: 065
     Dates: start: 20180530
  11. SUINY [Concomitant]
     Active Substance: ANAGLIPTIN
     Dosage: 100 MCI, QD
     Route: 048
  12. TRESIBA CHU FLEXTOUCH [Suspect]
     Active Substance: INSULIN DEGLUDEC
     Dosage: 10 IU
     Route: 058
     Dates: start: 20180607
  13. INSULIN GLARGINE [Concomitant]
     Active Substance: INSULIN GLARGINE
     Dosage: 10 U
     Route: 065
     Dates: start: 20180601
  14. TRESIBA CHU FLEXTOUCH [Suspect]
     Active Substance: INSULIN DEGLUDEC
     Dosage: 280 IU
     Route: 058
     Dates: start: 20180524

REACTIONS (4)
  - Accidental overdose [Unknown]
  - Thrombotic cerebral infarction [Not Recovered/Not Resolved]
  - Hypoglycaemic encephalopathy [Unknown]
  - Hypoglycaemic unconsciousness [Recovered/Resolved with Sequelae]

NARRATIVE: CASE EVENT DATE: 20180524
